FAERS Safety Report 9630107 (Version 1)
Quarter: 2013Q4

REPORT INFORMATION
  Report Type: Spontaneous
  Country: US (occurrence: US)
  Receive Date: 20131017
  Receipt Date: 20131017
  Transmission Date: 20140711
  Serious: Yes (Hospitalization)
  Sender: FDA-Public Use
  Company Number: US-ABBVIE-13P-163-1157237-00

PATIENT
  Age: 60 Year
  Sex: Female
  Weight: 64.47 kg

DRUGS (6)
  1. SYNTHROID [Suspect]
     Indication: THYROIDECTOMY
     Dates: start: 2007, end: 201309
  2. SYNTHROID [Suspect]
     Dates: start: 201309, end: 201309
  3. SYNTHROID [Suspect]
     Dates: start: 201309
  4. DIVIGEL [Concomitant]
     Indication: HORMONE REPLACEMENT THERAPY
     Route: 061
  5. PROGESTERONE [Concomitant]
     Indication: HORMONE REPLACEMENT THERAPY
  6. ALLEGRA-D [Concomitant]
     Indication: SEASONAL ALLERGY

REACTIONS (11)
  - Chest pain [Recovered/Resolved]
  - Nausea [Recovered/Resolved]
  - Drug ineffective [Unknown]
  - Product measured potency issue [Unknown]
  - Blood thyroid stimulating hormone increased [Recovering/Resolving]
  - Thinking abnormal [Recovering/Resolving]
  - Constipation [Recovered/Resolved]
  - Expired drug administered [Recovered/Resolved]
  - Asthenia [Not Recovered/Not Resolved]
  - Asthenia [Recovering/Resolving]
  - Fatigue [Recovered/Resolved]
